FAERS Safety Report 6571877-9 (Version None)
Quarter: 2010Q1

REPORT INFORMATION
  Report Type: 
  Country: None (occurrence: None)
  Receive Date: 20100205
  Receipt Date: 20100201
  Transmission Date: 20100710
  Serious: Yes (Hospitalization)
  Sender: FDA-Public Use
  Company Number: GB-ROCHE-605757

PATIENT
  Sex: Female
  Weight: 42.7 kg

DRUGS (10)
  1. TOCILIZUMAB [Suspect]
     Indication: RHEUMATOID ARTHRITIS
     Dosage: FORM: INFUSION IN 100 ML NACL, DATE OF LAST DOSE PRIOR TO SAE: 18 DEC 08, PERMANENTLY DISCONTINUED.
     Route: 042
     Dates: start: 20081120
  2. TOCILIZUMAB [Suspect]
     Dosage: DOSE: 8 MG/KG.  DRUG DISCONTINUED.
     Route: 042
     Dates: start: 20081218
  3. PROTELOS [Concomitant]
  4. LEVOTHYROXINE SODIUM [Concomitant]
  5. PARACETAMOL [Concomitant]
  6. OXYNORM [Concomitant]
     Dosage: TOTAL DAILY DOSE: 30 ^M/S^.
  7. PREDNISOLONE [Concomitant]
     Dosage: FREQUENCY: ONCE DAILY.
     Route: 048
  8. CELEBREX [Concomitant]
  9. SIMVASTATIN [Concomitant]
     Dosage: FREQUENCY: OD.
     Route: 048
  10. ASPIRIN [Concomitant]
     Route: 048

REACTIONS (1)
  - ARTERIOSPASM CORONARY [None]
